FAERS Safety Report 8533621-5 (Version None)
Quarter: 2012Q3

REPORT INFORMATION
  Report Type: 
  Country: None (occurrence: None)
  Receive Date: 20120724
  Receipt Date: 20120713
  Transmission Date: 20120928
  Serious: Yes (Other)
  Sender: FDA-Public Use
  Company Number: US-SANOFI-AVENTIS-2012SA045418

PATIENT
  Age: 73 Year
  Sex: Male
  Weight: 82.7 kg

DRUGS (15)
  1. ELOXATIN [Suspect]
     Indication: COLORECTAL CANCER
     Dosage: DAYS 1, 15
     Route: 041
     Dates: start: 20060602, end: 20060602
  2. HYDROCHLOROTHIAZIDE [Concomitant]
  3. VASOTEC [Concomitant]
  4. IRINOTECAN HCL [Suspect]
     Route: 042
     Dates: start: 20061117, end: 20061117
  5. AVASTIN [Suspect]
     Indication: COLORECTAL CANCER
     Dosage: DAYS 1, 15
     Route: 042
     Dates: start: 20060602, end: 20060602
  6. ELOXATIN [Suspect]
     Dosage: DAYS 1, 15
     Route: 041
     Dates: start: 20061117, end: 20061117
  7. TAMSULOSIN HYDROCHLORIDE [Concomitant]
  8. ATORVASTATIN [Concomitant]
  9. AVASTIN [Suspect]
     Dosage: DAYS 1, 15   TOTAL 413 MG GIVEN THIS COURSE
     Route: 042
     Dates: start: 20061201, end: 20061201
  10. FERROUS SULFATE TAB [Concomitant]
  11. IRINOTECAN HCL [Suspect]
     Dosage: TOTAL 228 MG GIVEN THIS COURSE
     Route: 042
     Dates: start: 20061201, end: 20061201
  12. POTASSIUM CHLORIDE [Concomitant]
  13. AVASTIN [Suspect]
     Dosage: DAYS 1, 15
     Route: 042
     Dates: start: 20061117, end: 20061117
  14. IRINOTECAN HCL [Suspect]
     Indication: COLORECTAL CANCER
     Route: 042
     Dates: start: 20060602, end: 20060602
  15. ATENOLOL [Concomitant]

REACTIONS (1)
  - PERIPHERAL MOTOR NEUROPATHY [None]
